FAERS Safety Report 24164452 (Version 5)
Quarter: 2025Q4

REPORT INFORMATION
  Report Type: Report from Study
  Country: MX (occurrence: MX)
  Receive Date: 20240801
  Receipt Date: 20251218
  Transmission Date: 20260117
  Serious: Yes (Life-Threatening, Other)
  Sender: NOVARTIS
  Company Number: MX-002147023-NVSC2024MX126489

PATIENT
  Sex: Male
  Weight: 23 kg

DRUGS (10)
  1. MYFORTIC [Suspect]
     Active Substance: MYCOPHENOLATE SODIUM
     Indication: Encephalitis
     Dosage: 3 DOSAGE FORM (1 TABLET IN THE MORNING AND 2 AT NIGHT)
     Route: 048
     Dates: start: 202204
  2. MYFORTIC [Suspect]
     Active Substance: MYCOPHENOLATE SODIUM
     Indication: Vasculitis
     Dosage: 180 MG
     Route: 065
  3. MYFORTIC [Suspect]
     Active Substance: MYCOPHENOLATE SODIUM
     Dosage: 3 DOSAGE FORM (ONE TABLET IN THE MORNING AND TWO AT NIGHT)
     Route: 048
     Dates: start: 2022
  4. CYCLOPHOSPHAMIDE [Concomitant]
     Active Substance: CYCLOPHOSPHAMIDE
     Indication: Encephalitis
     Dosage: UNK (3 ROUNDS)
     Route: 042
     Dates: start: 202301, end: 202303
  5. CYCLOPHOSPHAMIDE [Concomitant]
     Active Substance: CYCLOPHOSPHAMIDE
     Indication: Vasculitis
  6. OXCARBAZEPINE [Concomitant]
     Active Substance: OXCARBAZEPINE
     Indication: Seizure
     Dosage: 1 DOSAGE FORM, BID (1 TABLET OF 300 MG IN THE MORNING AND AT THE NIGHT))
     Route: 048
     Dates: start: 202202
  7. COMBIVENT [Concomitant]
     Active Substance: ALBUTEROL SULFATE\IPRATROPIUM BROMIDE
     Indication: Asthma
     Dosage: UNK UNK, PRN (1 SHOT)
     Route: 055
  8. JUNIOR ASPRIN [Concomitant]
     Indication: Encephalitis
     Dosage: UNK, QD (1 TABLET )
     Route: 048
     Dates: start: 2022
  9. JUNIOR ASPRIN [Concomitant]
     Indication: Vasculitis
  10. ALBUTEROL [Concomitant]
     Active Substance: ALBUTEROL
     Indication: Asthma
     Dosage: UNK, PRN (1 SHOT)
     Route: 055

REACTIONS (11)
  - Platelet count decreased [Recovered/Resolved]
  - Encephalitis [Unknown]
  - Psychotic disorder [Recovering/Resolving]
  - Bacterial diarrhoea [Not Recovered/Not Resolved]
  - Defiant behaviour [Recovering/Resolving]
  - Influenza [Recovered/Resolved]
  - Vasculitis [Unknown]
  - Off label use [Unknown]
  - COVID-19 [Recovered/Resolved]
  - Amnesia [Recovering/Resolving]
  - Fine motor skill dysfunction [Recovering/Resolving]

NARRATIVE: CASE EVENT DATE: 20220101
